FAERS Safety Report 8425200-5 (Version None)
Quarter: 2012Q2

REPORT INFORMATION
  Report Type: 
  Country: None (occurrence: None)
  Receive Date: 20120611
  Receipt Date: 20120605
  Transmission Date: 20120825
  Serious: No
  Sender: FDA-Public Use
  Company Number: US-PFIZER INC-2012135700

PATIENT
  Sex: Female
  Weight: 68.027 kg

DRUGS (6)
  1. EFFEXOR [Suspect]
     Indication: PANIC ATTACK
     Dosage: 250 MG, DAILY
     Dates: start: 20110101
  2. ZOLOFT [Concomitant]
     Indication: DEPRESSION
     Dosage: 75 MG, DAILY
  3. EFFEXOR [Suspect]
     Indication: DEPRESSION
     Dosage: 75 MG, DAILY
  4. EFFEXOR [Suspect]
     Indication: ANXIETY
     Dosage: 150 MG, DAILY
     Dates: start: 20110101, end: 20110101
  5. SIMVASTATIN [Concomitant]
     Indication: BLOOD CHOLESTEROL INCREASED
     Dosage: 75 MG, DAILY
  6. XANAX [Concomitant]
     Indication: ANXIETY
     Dosage: 4 MG, DAILY
     Route: 048

REACTIONS (5)
  - DRUG WITHDRAWAL SYNDROME [None]
  - DRUG DOSE OMISSION [None]
  - DRUG INEFFECTIVE [None]
  - PARAESTHESIA [None]
  - NIGHTMARE [None]
